FAERS Safety Report 23751650 (Version 4)
Quarter: 2024Q2

REPORT INFORMATION
  Report Type: Report from Study
  Country: US (occurrence: US)
  Receive Date: 20240417
  Receipt Date: 20240614
  Transmission Date: 20240716
  Serious: Yes (Death, Hospitalization, Other)
  Sender: FDA-Public Use
  Company Number: US-TAKEDA-2024TUS019921

PATIENT
  Age: 68 Year
  Sex: Male

DRUGS (3)
  1. FRUQUINTINIB [Suspect]
     Active Substance: FRUQUINTINIB
     Indication: Colon cancer
     Dosage: 5 MILLIGRAM, Q3WEEKS
     Route: 048
     Dates: start: 20231229
  2. FRUQUINTINIB [Suspect]
     Active Substance: FRUQUINTINIB
     Indication: Prostate cancer
     Dosage: 5 MILLIGRAM, Q3WEEKS
     Route: 048
     Dates: start: 20240110, end: 20240327
  3. FRUQUINTINIB [Suspect]
     Active Substance: FRUQUINTINIB
     Dosage: 5 MILLIGRAM, QD
     Route: 048

REACTIONS (20)
  - Death [Fatal]
  - Blood urine present [Unknown]
  - Pyrexia [Unknown]
  - Urostomy complication [Unknown]
  - Infection [Unknown]
  - Peripheral swelling [Recovering/Resolving]
  - Skin injury [Recovering/Resolving]
  - Blister [Recovering/Resolving]
  - Ageusia [Recovering/Resolving]
  - Cheilitis [Recovering/Resolving]
  - Tongue ulceration [Recovering/Resolving]
  - Nasal ulcer [Recovering/Resolving]
  - Dry skin [Recovering/Resolving]
  - Hypoaesthesia [Recovering/Resolving]
  - Pain [Recovering/Resolving]
  - Rash [Recovering/Resolving]
  - Epistaxis [Recovering/Resolving]
  - Blood pressure increased [Unknown]
  - Stomatitis [Recovering/Resolving]
  - Off label use [Unknown]

NARRATIVE: CASE EVENT DATE: 20240406
